FAERS Safety Report 25704919 (Version 2)
Quarter: 2025Q3

REPORT INFORMATION
  Report Type: Spontaneous
  Country: EU (occurrence: EU)
  Receive Date: 20250820
  Receipt Date: 20250910
  Transmission Date: 20251021
  Serious: Yes (Hospitalization)
  Sender: UCB
  Company Number: EU-BIAL-BIAL-19545

PATIENT
  Age: 24 Year
  Sex: Male

DRUGS (11)
  1. LACOSAMIDE [Suspect]
     Active Substance: LACOSAMIDE
     Indication: Partial seizures
     Dosage: 300 MILLIGRAM, QD
  2. ESLICARBAZEPINE ACETATE [Suspect]
     Active Substance: ESLICARBAZEPINE ACETATE
     Indication: Partial seizures
     Dosage: 1600 MILLIGRAM, QD
  3. PHENOBARBITAL [Suspect]
     Active Substance: PHENOBARBITAL
     Indication: Partial seizures
     Dosage: 150 MILLIGRAM, QD
  4. OLMESARTAN [Concomitant]
     Active Substance: OLMESARTAN
     Indication: Product used for unknown indication
  5. OMEPRAZOLE [Concomitant]
     Active Substance: OMEPRAZOLE
     Indication: Product used for unknown indication
  6. METFORMIN [Concomitant]
     Active Substance: METFORMIN HYDROCHLORIDE
     Indication: Product used for unknown indication
  7. DOMPERIDONE [Concomitant]
     Active Substance: DOMPERIDONE
     Indication: Product used for unknown indication
  8. AMLODIPINE [Concomitant]
     Active Substance: AMLODIPINE BESYLATE
     Indication: Product used for unknown indication
  9. EZETIMIBE [Concomitant]
     Active Substance: EZETIMIBE
     Indication: Product used for unknown indication
  10. SIMVASTATIN [Concomitant]
     Active Substance: SIMVASTATIN
     Indication: Product used for unknown indication
  11. SALICYLATES NOS [Concomitant]
     Active Substance: UNSPECIFIED INGREDIENT
     Indication: Product used for unknown indication

REACTIONS (1)
  - Hyponatraemia [Unknown]
